FAERS Safety Report 16715849 (Version 3)
Quarter: 2019Q4

REPORT INFORMATION
  Report Type: Spontaneous
  Country: US (occurrence: US)
  Receive Date: 20190819
  Receipt Date: 20191107
  Transmission Date: 20200122
  Serious: Yes (Other)
  Sender: FDA-Public Use
  Company Number: US-PFIZER INC-2019353205

PATIENT
  Age: 66 Year
  Sex: Female
  Weight: 73 kg

DRUGS (6)
  1. IBRANCE [Suspect]
     Active Substance: PALBOCICLIB
     Indication: BREAST CANCER FEMALE
     Dosage: 125 MG, UNK
  2. IBRANCE [Suspect]
     Active Substance: PALBOCICLIB
     Dosage: 125 MG, CYCLIC [TAKE 01 CAPSULE BY MOUTH DAILY FOR 21 DAY(S) ON THEN 7 DAY(S) OFF]
     Route: 048
     Dates: start: 20190607, end: 20190627
  3. IBRANCE [Suspect]
     Active Substance: PALBOCICLIB
     Dosage: 125 MG, UNK
     Route: 048
     Dates: start: 20190712, end: 20190801
  4. IBRANCE [Suspect]
     Active Substance: PALBOCICLIB
     Dosage: 100 MG, UNK
  5. IBRANCE [Suspect]
     Active Substance: PALBOCICLIB
     Dosage: 100 MG (CYCLIC [IBRANCE CAP 100 MG X 21)
     Route: 048
     Dates: start: 20190816
  6. IBRANCE [Suspect]
     Active Substance: PALBOCICLIB
     Dosage: 100 MG, CYCLIC [TAKE 01 CAPSULE BY MOUTH DAILY FOR 21 DAY(S) ON THEN 7 DAY(S) OFF]
     Route: 048
     Dates: start: 20190816

REACTIONS (3)
  - Neutrophil count decreased [Unknown]
  - Full blood count abnormal [Recovered/Resolved]
  - Red blood cell count decreased [Unknown]

NARRATIVE: CASE EVENT DATE: 20190620
